FAERS Safety Report 6603857-9 (Version None)
Quarter: 2010Q1

REPORT INFORMATION
  Report Type: 
  Country: None (occurrence: None)
  Receive Date: 20100226
  Receipt Date: 20090304
  Transmission Date: 20100710
  Serious: No
  Sender: FDA-Public Use
  Company Number: A0770214A

PATIENT
  Sex: Female

DRUGS (3)
  1. LAMICTAL CD [Suspect]
     Indication: BIPOLAR DISORDER
     Route: 048
     Dates: start: 20090201, end: 20090218
  2. VALPROATE SODIUM [Concomitant]
  3. CLOZARIL [Concomitant]

REACTIONS (3)
  - ACCIDENTAL OVERDOSE [None]
  - PRURITUS [None]
  - RASH [None]
